FAERS Safety Report 5262841-0 (Version None)
Quarter: 2007Q1

REPORT INFORMATION
  Report Type: 
  Country: None (occurrence: None)
  Receive Date: 20070312
  Receipt Date: 20070308
  Transmission Date: 20070707
  Serious: Yes (Hospitalization)
  Sender: FDA-Public Use
  Company Number: US-BRISTOL-MYERS SQUIBB COMPANY-13614417

PATIENT
  Age: 56 Year
  Sex: Male
  Weight: 76 kg

DRUGS (8)
  1. TAXOL [Suspect]
     Indication: NON-SMALL CELL LUNG CANCER
     Route: 042
     Dates: start: 20061206, end: 20061206
  2. CARBOPLATIN [Suspect]
     Indication: NON-SMALL CELL LUNG CANCER
     Route: 042
     Dates: start: 20061206, end: 20061206
  3. OXYCONTIN [Concomitant]
  4. PHENERGAN HCL [Concomitant]
  5. XANAX [Concomitant]
  6. ADVAIR DISKUS 100/50 [Concomitant]
  7. PERCOCET [Concomitant]
  8. SPIRIVA [Concomitant]

REACTIONS (1)
  - DEHYDRATION [None]
